FAERS Safety Report 18589675 (Version 1)
Quarter: 2020Q4

REPORT INFORMATION
  Report Type: Spontaneous
  Country: US (occurrence: US)
  Receive Date: 20201204
  Receipt Date: 20201204
  Transmission Date: 20210114
  Serious: Yes (Hospitalization)
  Sender: FDA-Public Use
  Company Number: None

PATIENT
  Age: 42 Year
  Sex: Male

DRUGS (6)
  1. HUMIRA [Suspect]
     Active Substance: ADALIMUMAB
     Dosage: INJECT ONE PEN (40 MG) UNDER THE SKIN 2 WEEKS AFTER INDUCTION DOSING, THEN EVERY 2 WEEKS THEREAFTER
     Route: 058
     Dates: start: 20200916
  2. MESALAMINE. [Concomitant]
     Active Substance: MESALAMINE
  3. DIVALPROEX [Concomitant]
     Active Substance: DIVALPROEX SODIUM
  4. OXYCODONE [Concomitant]
     Active Substance: OXYCODONE
  5. PREDNISONE. [Concomitant]
     Active Substance: PREDNISONE
  6. METHSCOPOLAM [Concomitant]

REACTIONS (1)
  - Condition aggravated [None]

NARRATIVE: CASE EVENT DATE: 202010
